FAERS Safety Report 18676921 (Version 2)
Quarter: 2021Q1

REPORT INFORMATION
  Report Type: Report from Study
  Country: NL (occurrence: NL)
  Receive Date: 20201229
  Receipt Date: 20210105
  Transmission Date: 20210419
  Serious: Yes (Hospitalization)
  Sender: FDA-Public Use
  Company Number: NL-PFIZER INC-2020508324

PATIENT
  Age: 71 Year
  Sex: Male
  Weight: 99.5 kg

DRUGS (10)
  1. CICLESONIDE [Concomitant]
     Active Substance: CICLESONIDE
     Indication: CHRONIC OBSTRUCTIVE PULMONARY DISEASE
     Dosage: 320 UG, AS NEEDED (CICLESONIDE AEROSOL)
     Route: 048
     Dates: start: 20160817
  2. IPRATROPIUM [Concomitant]
     Active Substance: IPRATROPIUM
     Indication: CHRONIC OBSTRUCTIVE PULMONARY DISEASE
     Dosage: 20 UG, AS NEEDED
     Route: 048
     Dates: start: 20171128
  3. VASELINE CETOMACROGOL [Concomitant]
     Dosage: 1 G, 1X/DAY (EPICUTANEOUS)
     Route: 061
     Dates: start: 20170118
  4. AVELUMAB [Suspect]
     Active Substance: AVELUMAB
     Indication: RENAL CELL CARCINOMA
     Dosage: 1000 MG, EVERY 2 WEEKS
     Route: 042
     Dates: start: 20170103, end: 20201009
  5. INLYTA [Suspect]
     Active Substance: AXITINIB
     Indication: RENAL CELL CARCINOMA
     Dosage: 5 MG, TWICE DAILY CONTINUOUS
     Route: 048
     Dates: start: 20170103, end: 201710
  6. LEVOTHYROXINE. [Concomitant]
     Active Substance: LEVOTHYROXINE
     Indication: HYPOTHYROIDISM
     Dosage: 75 UG, AS NEEDED
     Route: 048
     Dates: start: 20160704
  7. LISINOPRIL. [Concomitant]
     Active Substance: LISINOPRIL
     Indication: HYPERTENSION
     Dosage: 5 MG, 1X/DAY
     Route: 048
     Dates: start: 20180605
  8. D?CURA [Concomitant]
     Active Substance: CHOLECALCIFEROL
     Dosage: 25.000IE MG, ONCE A MONTH (DRINK)
     Route: 048
     Dates: start: 20161102
  9. PARACETAMOL [Concomitant]
     Active Substance: ACETAMINOPHEN
     Dosage: 1000 MG, 2X/DAY
     Route: 048
     Dates: start: 20170530
  10. SIMVASTATINE [Concomitant]
     Active Substance: SIMVASTATIN
     Indication: HYPERCHOLESTEROLAEMIA
     Dosage: 20 MG, 1X/DAY
     Route: 048
     Dates: start: 20100204

REACTIONS (1)
  - Urinary tract infection [Recovering/Resolving]

NARRATIVE: CASE EVENT DATE: 20201220
